FAERS Safety Report 7326844-4 (Version None)
Quarter: 2011Q1

REPORT INFORMATION
  Report Type: 
  Country: None (occurrence: None)
  Receive Date: 20110302
  Receipt Date: 20110222
  Transmission Date: 20110831
  Serious: Yes (Other)
  Sender: FDA-Public Use
  Company Number: DE-PFIZER INC-2010135778

PATIENT
  Age: 55 Year
  Sex: Female
  Weight: 75 kg

DRUGS (6)
  1. ARCOXIA [Suspect]
     Indication: OSTEOARTHRITIS
     Dosage: 90 MG, 1X/DAY
     Route: 048
     Dates: start: 20100527, end: 20100610
  2. PF-04383119 [Suspect]
     Indication: OSTEOARTHRITIS
     Dosage: 10 MG, ONCE
     Route: 042
     Dates: start: 20100621, end: 20100621
  3. ARCOXIA [Suspect]
     Dosage: 90 MG, 1X/DAY
     Route: 048
     Dates: start: 20100704
  4. PLACEBO [Suspect]
     Indication: OSTEOARTHRITIS
     Dosage: 0 MG, BID
     Route: 048
     Dates: start: 20100621, end: 20100623
  5. IBUPROFEN [Suspect]
     Indication: OSTEOARTHRITIS
     Dosage: 600 MG, 1X/DAY
     Route: 048
     Dates: start: 20070101, end: 20100610
  6. IBUPROFEN [Suspect]
     Dosage: 600 MG, 1X/DAY
     Route: 048
     Dates: start: 20100704

REACTIONS (1)
  - OSTEONECROSIS [None]
